FAERS Safety Report 16430754 (Version 2)
Quarter: 2019Q2

REPORT INFORMATION
  Report Type: Report from Study
  Country: HU (occurrence: HU)
  Receive Date: 20190614
  Receipt Date: 20190627
  Transmission Date: 20190711
  Serious: Yes (Death, Hospitalization, Other)
  Sender: FDA-Public Use
  Company Number: PHHY2019HU136561

PATIENT
  Sex: Female
  Weight: 53 kg

DRUGS (1)
  1. SANDOSTATIN LAR DEPOT [Suspect]
     Active Substance: OCTREOTIDE ACETATE
     Indication: CARCINOID TUMOUR
     Dosage: UNK UNK, QMO
     Route: 030
     Dates: start: 20120209

REACTIONS (3)
  - Carcinoid tumour [Fatal]
  - Cachexia [Fatal]
  - Malignant neoplasm progression [Fatal]
